FAERS Safety Report 6636030-9 (Version None)
Quarter: 2010Q1

REPORT INFORMATION
  Report Type: 
  Country: None (occurrence: None)
  Receive Date: 20100316
  Receipt Date: 20100304
  Transmission Date: 20100710
  Serious: Yes (Other)
  Sender: FDA-Public Use
  Company Number: PHHY2009JP09883

PATIENT
  Sex: Female

DRUGS (9)
  1. SIMULECT [Suspect]
     Indication: RENAL TRANSPLANT
     Dosage: 20 MG/DAY
     Route: 042
     Dates: start: 20070511, end: 20070511
  2. SIMULECT [Suspect]
     Dosage: 20 MG/DAY
     Route: 042
     Dates: start: 20070515, end: 20070515
  3. SANDIMMUNE [Suspect]
     Indication: RENAL TRANSPLANT
     Dosage: 100 MG/DAY
     Route: 042
     Dates: start: 20070511, end: 20070515
  4. NEORAL [Suspect]
     Indication: RENAL TRANSPLANT
     Dosage: 200 MG/DAY
     Route: 048
     Dates: start: 20070515
  5. MEDROL [Suspect]
     Indication: RENAL TRANSPLANT
     Dosage: 16 MG/DAY
     Route: 048
     Dates: start: 20070515
  6. CELLCEPT [Suspect]
     Indication: RENAL TRANSPLANT
     Dosage: 600 MG/DAY
     Route: 048
     Dates: start: 20070511
  7. SOL-MELCORT [Suspect]
     Indication: RENAL TRANSPLANT
     Dosage: 20 MG/DAY
     Route: 042
     Dates: start: 20070511, end: 20070514
  8. NORVASC [Concomitant]
     Indication: HYPERTENSION
     Dosage: UNK
  9. SEPAMIT [Concomitant]
     Indication: HYPERTENSION
     Dosage: UNK

REACTIONS (3)
  - CYTOMEGALOVIRUS INFECTION [None]
  - GASTRITIS HAEMORRHAGIC [None]
  - HYPERTENSION [None]
